FAERS Safety Report 19799654 (Version 1)
Quarter: 2021Q3

REPORT INFORMATION
  Report Type: Spontaneous
  Country: JP (occurrence: JP)
  Receive Date: 20210907
  Receipt Date: 20210907
  Transmission Date: 20211014
  Serious: Yes (Hospitalization, Other)
  Sender: FDA-Public Use
  Company Number: JP-BAYER-2013-113422

PATIENT
  Age: 52 Year
  Sex: Female
  Weight: 44 kg

DRUGS (9)
  1. OXINORM [OXYCODONE HYDROCHLORIDE] [Concomitant]
     Active Substance: OXYCODONE HYDROCHLORIDE
     Indication: COLON CANCER
     Dosage: 1 G, PRN
     Route: 048
     Dates: start: 20130725
  2. STIVARGA [Suspect]
     Active Substance: REGORAFENIB
     Indication: METASTASES TO PERITONEUM
     Dosage: 120 MG, QD
     Route: 048
     Dates: start: 20130815, end: 20130819
  3. BIFIDOBACTERIUM BIFIDUM [Concomitant]
     Active Substance: BIFIDOBACTERIUM BIFIDUM
     Dosage: DAILY DOSE 3 G
     Route: 048
     Dates: start: 20120428
  4. OXYCONTIN [Concomitant]
     Active Substance: OXYCODONE HYDROCHLORIDE
     Indication: COLON CANCER
     Dosage: DAILY DOSE 10 MG
     Route: 048
     Dates: start: 20130723, end: 20130923
  5. ECABET MONOSODIUM [Concomitant]
     Dosage: DAILY DOSE 3 G
     Route: 048
     Dates: start: 20130220
  6. STIVARGA [Suspect]
     Active Substance: REGORAFENIB
     Indication: COLON CANCER
     Dosage: 80 MG, QD
     Route: 048
     Dates: start: 20130924, end: 20131014
  7. ESOMEPRAZOLE. [Concomitant]
     Active Substance: ESOMEPRAZOLE MAGNESIUM
     Dosage: DAILY DOSE 20 MG
     Route: 048
     Dates: start: 20130220
  8. OXYCONTIN [Concomitant]
     Active Substance: OXYCODONE HYDROCHLORIDE
     Indication: COLON CANCER
     Dosage: DAILY DOSE 50 MG
     Route: 048
     Dates: start: 20130924
  9. STIVARGA [Suspect]
     Active Substance: REGORAFENIB
     Indication: COLON CANCER
     Dosage: 160 MG, QD
     Route: 048
     Dates: start: 20130730, end: 20130814

REACTIONS (4)
  - Palmar-plantar erythrodysaesthesia syndrome [None]
  - Hepatic function abnormal [Recovered/Resolved]
  - Skin disorder [None]
  - Colon cancer [None]

NARRATIVE: CASE EVENT DATE: 20130815
